FAERS Safety Report 16636666 (Version 2)
Quarter: 2019Q3

REPORT INFORMATION
  Report Type: Spontaneous
  Country: DE (occurrence: DE)
  Receive Date: 20190726
  Receipt Date: 20190830
  Transmission Date: 20191004
  Serious: Yes (Other)
  Sender: FDA-Public Use
  Company Number: DE-PFIZER INC-2019320449

PATIENT

DRUGS (7)
  1. METHOTREXATE SODIUM. [Suspect]
     Active Substance: METHOTREXATE SODIUM
     Dosage: UNK
     Route: 065
  2. GOLIMUMAB [Suspect]
     Active Substance: GOLIMUMAB
     Dosage: UNK
     Route: 065
  3. ETANERCEPT [Suspect]
     Active Substance: ETANERCEPT
     Dosage: UNK
     Route: 065
  4. LEFLUNOMIDE. [Suspect]
     Active Substance: LEFLUNOMIDE
     Dosage: UNK
     Route: 065
  5. INFLIXIMAB PFIZER [Suspect]
     Active Substance: INFLIXIMAB
     Dosage: UNK
     Route: 065
  6. USTEKINUMAB [Suspect]
     Active Substance: USTEKINUMAB
     Dosage: UNK
     Route: 065
  7. SECUKINUMAB. [Suspect]
     Active Substance: SECUKINUMAB
     Dosage: UNK

REACTIONS (4)
  - Drug ineffective [Unknown]
  - Lupus-like syndrome [Unknown]
  - Alopecia [Unknown]
  - Hepatotoxicity [Unknown]
